FAERS Safety Report 7742854-7 (Version None)
Quarter: 2011Q3

REPORT INFORMATION
  Report Type: 
  Country: None (occurrence: None)
  Receive Date: 20110912
  Receipt Date: 20110830
  Transmission Date: 20111222
  Serious: Yes (Hospitalization)
  Sender: FDA-Public Use
  Company Number: US-BAYER-2011-022498

PATIENT
  Sex: Female
  Weight: 73.1 kg

DRUGS (7)
  1. YASMIN [Suspect]
     Indication: CONTRACEPTION
     Dosage: UNK
     Dates: start: 20070213, end: 20070430
  2. LORTAB [Concomitant]
  3. YASMIN [Suspect]
     Indication: PREMENSTRUAL SYNDROME
  4. CELEBREX [Concomitant]
     Dosage: 200 MG, QD
     Route: 048
     Dates: start: 20070209
  5. OXYCODONE HCL [Concomitant]
     Dosage: 20 MG, BID
     Route: 048
     Dates: start: 20070209
  6. HYDROCODONE BITARTRATE AND ACETAMINOPHEN [Concomitant]
     Dosage: UNK
     Route: 048
     Dates: start: 20070215
  7. YASMIN [Suspect]
     Indication: ACNE

REACTIONS (7)
  - CONTUSION [None]
  - VEIN DISORDER [None]
  - PAIN [None]
  - SKIN DISCOLOURATION [None]
  - INJURY [None]
  - OEDEMA PERIPHERAL [None]
  - DEEP VEIN THROMBOSIS [None]
